FAERS Safety Report 4303140-0 (Version None)
Quarter: 2004Q1

REPORT INFORMATION
  Report Type: 
  Country: None (occurrence: None)
  Receive Date: 20040224
  Receipt Date: 20040213
  Transmission Date: 20041129
  Serious: Yes (Hospitalization)
  Sender: FDA-Public Use
  Company Number: DE-BRISTOL-MYERS SQUIBB COMPANY-12504957

PATIENT
  Age: 70 Year
  Sex: Male
  Weight: 68 kg

DRUGS (2)
  1. PACLITAXEL [Suspect]
     Indication: BLADDER CANCER
     Route: 042
     Dates: start: 20030520, end: 20030520
  2. GEMCITABINE [Suspect]
     Indication: BLADDER CANCER
     Route: 042
     Dates: start: 20030527, end: 20030527

REACTIONS (2)
  - ANOREXIA [None]
  - ASTHENIA [None]
